FAERS Safety Report 13554100 (Version 3)
Quarter: 2017Q3

REPORT INFORMATION
  Report Type: Spontaneous
  Country: US (occurrence: US)
  Receive Date: 20170517
  Receipt Date: 20170707
  Transmission Date: 20171127
  Serious: No
  Sender: FDA-Public Use
  Company Number: US-GLAXOSMITHKLINE-US2017071970

PATIENT
  Sex: Female

DRUGS (1)
  1. SEREVENT DISKUS [Suspect]
     Active Substance: SALMETEROL XINAFOATE
     Indication: PRODUCT USED FOR UNKNOWN INDICATION
     Dosage: 1 PUFF(S), BID
     Route: 055

REACTIONS (2)
  - Product quality issue [Unknown]
  - Drug ineffective [Unknown]
